FAERS Safety Report 7929934-8 (Version None)
Quarter: 2011Q4

REPORT INFORMATION
  Report Type: 
  Country: None (occurrence: None)
  Receive Date: 20111108
  Receipt Date: 20110316
  Transmission Date: 20120403
  Serious: Yes (Other)
  Sender: FDA-Public Use
  Company Number: PHHY2011US15528

PATIENT
  Age: 80 Year
  Sex: Female
  Weight: 67 kg

DRUGS (5)
  1. ATENOLOL [Concomitant]
  2. ZOMETA [Suspect]
     Indication: MULTIPLE MYELOMA
     Dosage: 3-4 MG EVERY 4 WEEKS, INTRAVENOUS
     Route: 042
     Dates: start: 20080116, end: 20110222
  3. DIOVAN [Concomitant]
  4. PHOSLO [Concomitant]
  5. VELCADE [Concomitant]

REACTIONS (3)
  - OSTEONECROSIS OF JAW [None]
  - TOOTH DISORDER [None]
  - PAIN IN JAW [None]
